FAERS Safety Report 9155355 (Version 1)
Quarter: 2013Q1

REPORT INFORMATION
  Report Type: Spontaneous
  Country: DE (occurrence: None)
  Receive Date: 20130206
  Receipt Date: 20130206
  Transmission Date: 20140127
  Serious: Yes (Hospitalization)
  Sender: FDA-Public Use
  Company Number: GER/GER/13/0027763

PATIENT
  Age: 73 Year
  Sex: Female
  Weight: 62 kg

DRUGS (3)
  1. ALENDRONIC ACID [Suspect]
     Indication: OSTEOPOROSIS
     Dosage: 1 IN 1 WK
     Route: 048
     Dates: start: 201207
  2. OPIPRAMOL (OPIPRAMOL) [Concomitant]
  3. RESTEX (MADOPAR) [Concomitant]

REACTIONS (5)
  - Face oedema [None]
  - Glossodynia [None]
  - Paraesthesia oral [None]
  - Tongue ulceration [None]
  - Tongue discolouration [None]
